FAERS Safety Report 9759358 (Version 1)
Quarter: 2013Q4

REPORT INFORMATION
  Report Type: Spontaneous
  Country: US (occurrence: None)
  Receive Date: 20131216
  Receipt Date: 20131216
  Transmission Date: 20140711
  Serious: Yes (Hospitalization)
  Sender: FDA-Public Use
  Company Number: 163-21880-12040102(0)

PATIENT
  Age: 82 Year
  Sex: Female
  Weight: 86 kg

DRUGS (1)
  1. REVLIMID(LENALIDOMIDE)(25 MILLIGRAM, CAPSULES) [Suspect]
     Indication: PLASMA CELL MYELOMA
     Dosage: 25 MG, DAILY FOR 21 DAYS, PO?15 MG, PO? ?

REACTIONS (4)
  - Dehydration [None]
  - Anaemia [None]
  - White blood cell count decreased [None]
  - Urinary tract infection [None]
